FAERS Safety Report 10310370 (Version 2)
Quarter: 2014Q3

REPORT INFORMATION
  Report Type: Spontaneous
  Country: SG (occurrence: SG)
  Receive Date: 20140717
  Receipt Date: 20140717
  Transmission Date: 20150326
  Serious: Yes (Hospitalization)
  Sender: FDA-Public Use
  Company Number: SG-BAYER-2014-068390

PATIENT
  Age: 49 Year
  Sex: Female

DRUGS (2)
  1. STIVARGA [Suspect]
     Active Substance: REGORAFENIB
     Indication: COLON CANCER
     Dosage: 80/120 MG DOSING
     Route: 048
     Dates: start: 201402, end: 201405
  2. STIVARGA [Suspect]
     Active Substance: REGORAFENIB
     Indication: COLON CANCER
     Dosage: 120 MG, DAILY
     Route: 048
     Dates: start: 20131219, end: 20140527

REACTIONS (2)
  - Pneumoperitoneum [None]
  - Gastrointestinal perforation [None]

NARRATIVE: CASE EVENT DATE: 20140507
